FAERS Safety Report 6972708-5 (Version None)
Quarter: 2010Q3

REPORT INFORMATION
  Report Type: 
  Country: None (occurrence: None)
  Receive Date: 20100909
  Receipt Date: 20090831
  Transmission Date: 20110219
  Serious: No
  Sender: FDA-Public Use
  Company Number: US-KINGPHARMUSA00001-K200901070

PATIENT
  Age: 33 Year
  Sex: Female
  Weight: 72.562 kg

DRUGS (2)
  1. CYTOMEL [Suspect]
     Indication: THYROID DISORDER
     Dosage: 1 TABLET, BID
     Route: 048
     Dates: start: 20090601, end: 20090101
  2. CYTOMEL [Suspect]
     Dosage: 1/2 TABLET, BID
     Dates: start: 20090101, end: 20090726

REACTIONS (4)
  - FEELING JITTERY [None]
  - PALPITATIONS [None]
  - PANIC ATTACK [None]
  - TREMOR [None]
